FAERS Safety Report 23878369 (Version 1)
Quarter: 2024Q2

REPORT INFORMATION
  Report Type: Spontaneous
  Country: US (occurrence: None)
  Receive Date: 20240520
  Receipt Date: 20240520
  Transmission Date: 20240716
  Serious: Yes (Hospitalization, Disabling)
  Sender: FDA-Public Use
  Company Number: None

PATIENT
  Age: 15 Year
  Sex: Female
  Weight: 46.35 kg

DRUGS (1)
  1. GAMUNEX-C [Suspect]
     Active Substance: HUMAN IMMUNOGLOBULIN G
     Indication: Autonomic ganglionectomy
     Dosage: OTHER FREQUENCY : 2 DAYS 24HRS-4WKS;?
     Route: 042
     Dates: start: 20240102, end: 20240402

REACTIONS (8)
  - Red blood cell sedimentation rate increased [None]
  - Complement factor C4 decreased [None]
  - Alopecia [None]
  - Arthralgia [None]
  - Joint swelling [None]
  - Pyrexia [None]
  - Renal pain [None]
  - Dialysis [None]

NARRATIVE: CASE EVENT DATE: 20240102
